FAERS Safety Report 19588617 (Version 1)
Quarter: 2021Q3

REPORT INFORMATION
  Report Type: Spontaneous
  Country: US (occurrence: US)
  Receive Date: 20210721
  Receipt Date: 20210721
  Transmission Date: 20211014
  Serious: No
  Sender: FDA-Public Use
  Company Number: None

PATIENT
  Age: 9 Year
  Sex: Female
  Weight: 49.5 kg

DRUGS (2)
  1. ALLERGY MEDS [Concomitant]
  2. NEUTROGENA BEACH DEFENSE WATER PLUS SUN PROTECTION SUNSCREEN BROAD SPECTRUM SPF100 [Suspect]
     Active Substance: AVOBENZONE\HOMOSALATE\OCTISALATE\OCTOCRYLENE\OXYBENZONE
     Indication: PROPHYLAXIS AGAINST SOLAR RADIATION
     Dosage: ?OTHER STRENGTH:WATER AND SUN PROT;?QUANTITY:1 SPRAY(S);?OTHER FREQUENCY:AT OCEAN SWIMMING;?
     Route: 061
     Dates: start: 20210704, end: 20210709

REACTIONS (2)
  - Dry skin [None]
  - Rash pruritic [None]

NARRATIVE: CASE EVENT DATE: 20210705
